FAERS Safety Report 9889360 (Version 2)
Quarter: 2014Q1

REPORT INFORMATION
  Report Type: Report from Study
  Country: VE (occurrence: VE)
  Receive Date: 20140211
  Receipt Date: 20140211
  Transmission Date: 20141002
  Serious: Yes (Hospitalization, Other)
  Sender: FDA-Public Use
  Company Number: VE-ABBVIE-13P-178-1035788-00

PATIENT
  Age: 51 Year
  Sex: Female
  Weight: 66 kg

DRUGS (3)
  1. HUMIRA [Suspect]
     Indication: PSORIATIC ARTHROPATHY
     Route: 058
     Dates: start: 20100211, end: 201206
  2. NSAID^S [Suspect]
     Indication: PRODUCT USED FOR UNKNOWN INDICATION
  3. STEROIDS [Concomitant]
     Indication: PRODUCT USED FOR UNKNOWN INDICATION

REACTIONS (9)
  - Renal failure [Unknown]
  - Osteomyelitis [Not Recovered/Not Resolved]
  - Arthritis [Unknown]
  - Escherichia infection [Unknown]
  - Salmonellosis [Unknown]
  - Hepatic failure [Unknown]
  - White blood cell count decreased [Unknown]
  - Osteomyelitis [Not Recovered/Not Resolved]
  - Osteomyelitis [Recovered/Resolved with Sequelae]
